FAERS Safety Report 23258532 (Version 1)
Quarter: 2023Q4

REPORT INFORMATION
  Report Type: Spontaneous
  Country: CN (occurrence: CN)
  Receive Date: 20231204
  Receipt Date: 20231204
  Transmission Date: 20240110
  Serious: Yes (Other)
  Sender: FDA-Public Use
  Company Number: None

PATIENT
  Age: 48 Year
  Sex: Female
  Weight: 67 kg

DRUGS (15)
  1. CYCLOPHOSPHAMIDE [Suspect]
     Active Substance: CYCLOPHOSPHAMIDE
     Indication: Invasive breast carcinoma
     Dosage: 0.8 G, ONE TIME IN ONE DAY  (0.2 G) (IMPORTED) (HIGH WARNING B), DILUTED WITH 40 ML OF 0.9% SODIUM C
     Route: 041
     Dates: start: 20231105, end: 20231105
  2. CYCLOPHOSPHAMIDE [Suspect]
     Active Substance: CYCLOPHOSPHAMIDE
     Indication: Invasive lobular breast carcinoma
  3. CYCLOPHOSPHAMIDE [Suspect]
     Active Substance: CYCLOPHOSPHAMIDE
     Indication: Hormone receptor positive breast cancer
  4. PIRARUBICIN HYDROCHLORIDE [Suspect]
     Active Substance: PIRARUBICIN HYDROCHLORIDE
     Indication: Invasive breast carcinoma
     Dosage: 80 MG, ONE TIME IN ONE DAY, (10MG) (HIGH WARNING B) DILUTED WITH 40 ML OF 5% GLUCOSE, (100ML: 5G), S
     Route: 041
     Dates: start: 20231105, end: 20231105
  5. PIRARUBICIN HYDROCHLORIDE [Suspect]
     Active Substance: PIRARUBICIN HYDROCHLORIDE
     Indication: Invasive lobular breast carcinoma
  6. PIRARUBICIN HYDROCHLORIDE [Suspect]
     Active Substance: PIRARUBICIN HYDROCHLORIDE
     Indication: Hormone receptor positive breast cancer
  7. PACLITAXEL [Suspect]
     Active Substance: PACLITAXEL
     Indication: Invasive breast carcinoma
     Dosage: 430 MG, ONE TIME IN ONE DAY, (100 MG) (HUNAN) DILUTED WITH 86 ML OF 0.9% SODIUM CHLORIDE, SIXTH NEOA
     Route: 041
     Dates: start: 20231105, end: 20231105
  8. PACLITAXEL [Suspect]
     Active Substance: PACLITAXEL
     Indication: Invasive lobular breast carcinoma
  9. PACLITAXEL [Suspect]
     Active Substance: PACLITAXEL
     Indication: Hormone receptor positive breast cancer
  10. SODIUM CHLORIDE [Suspect]
     Active Substance: SODIUM CHLORIDE
     Indication: Invasive breast carcinoma
     Dosage: 40 ML, ONE TIME IN ONE DAY, (100ML: 0.9G) (SICHUAN), USED TO DILUTE 0.8 G OF CYCLOPHOSPHAMIDE, SIXTH
     Route: 041
     Dates: start: 20231105, end: 20231105
  11. SODIUM CHLORIDE [Suspect]
     Active Substance: SODIUM CHLORIDE
     Indication: Invasive lobular breast carcinoma
     Dosage: 86 ML, ONE TIME IN ONE DAY, (100ML: 0.9G) (SICHUAN) USED TO DILUTE 430 MG OF PACLITAXEL, SIXTH NEOAD
     Route: 041
     Dates: start: 20231105, end: 20231105
  12. SODIUM CHLORIDE [Suspect]
     Active Substance: SODIUM CHLORIDE
     Indication: Hormone receptor positive breast cancer
  13. DEXTROSE [Suspect]
     Active Substance: DEXTROSE\DEXTROSE MONOHYDRATE
     Indication: Invasive breast carcinoma
     Dosage: 40 ML, ONE TIME IN ONE DAY, (100ML: 5G), USED TO DILUTE 80 MG OF PIRARUBICIN HYDROCHLORIDE, SIXTH NE
     Route: 041
     Dates: start: 20231105, end: 20231105
  14. DEXTROSE [Suspect]
     Active Substance: DEXTROSE\DEXTROSE MONOHYDRATE
     Indication: Invasive lobular breast carcinoma
  15. DEXTROSE [Suspect]
     Active Substance: DEXTROSE\DEXTROSE MONOHYDRATE
     Indication: Hormone receptor positive breast cancer

REACTIONS (6)
  - Gastrointestinal disorder [Unknown]
  - Dysphagia [Recovering/Resolving]
  - Nausea [Recovering/Resolving]
  - Vomiting [Recovering/Resolving]
  - Decreased appetite [Unknown]
  - Discomfort [Unknown]

NARRATIVE: CASE EVENT DATE: 20231106
